FAERS Safety Report 9082195 (Version 4)
Quarter: 2013Q2

REPORT INFORMATION
  Report Type: Spontaneous
  Country: US (occurrence: US)
  Receive Date: 20130131
  Receipt Date: 20130508
  Transmission Date: 20140414
  Serious: No
  Sender: FDA-Public Use
  Company Number: US-009507513-1301USA012299

PATIENT
  Age: 15 Year
  Sex: Female
  Weight: 66.67 kg

DRUGS (2)
  1. NEXPLANON [Suspect]
     Indication: CONTRACEPTION
     Dosage: 1 DF, RIGHT ARM
     Dates: start: 20130124
  2. NEXPLANON [Suspect]
     Dosage: 1 DF
     Dates: start: 20130124

REACTIONS (4)
  - Device malfunction [Recovered/Resolved]
  - Device difficult to use [Recovered/Resolved]
  - Product quality issue [Recovered/Resolved]
  - No adverse event [Unknown]
